FAERS Safety Report 6018696-X (Version None)
Quarter: 2008Q4

REPORT INFORMATION
  Report Type: 
  Country: None (occurrence: None)
  Receive Date: 20081223
  Receipt Date: 20081215
  Transmission Date: 20090506
  Serious: Yes (Disabling)
  Sender: FDA-Public Use
  Company Number: US-MERCK-0812USA02020

PATIENT
  Age: 45 Year
  Sex: Male

DRUGS (9)
  1. MAXALT [Suspect]
     Route: 048
     Dates: start: 20080101
  2. [THERAPY UNSPECIFIED] [Concomitant]
     Route: 065
  3. METFORMIN [Concomitant]
     Route: 065
  4. ZOCOR [Concomitant]
     Route: 048
  5. JANUVIA [Concomitant]
     Route: 048
  6. GLYSET [Concomitant]
     Route: 065
  7. VASOTEC [Concomitant]
     Route: 048
  8. XIBROM [Concomitant]
     Route: 065
  9. PRED FORTE [Concomitant]
     Route: 065

REACTIONS (4)
  - EYE DISORDER [None]
  - PHOTOPHOBIA [None]
  - RETINOPATHY [None]
  - VISUAL ACUITY REDUCED [None]
